FAERS Safety Report 6290682-4 (Version None)
Quarter: 2009Q3

REPORT INFORMATION
  Report Type: 
  Country: None (occurrence: None)
  Receive Date: 20090730
  Receipt Date: 20090724
  Transmission Date: 20100115
  Serious: No
  Sender: FDA-Public Use
  Company Number: US-B.I. PHARMACEUTICALS,INC./RIDGEFIELD-2009-BP-08841BP

PATIENT
  Sex: Male

DRUGS (2)
  1. SPIRIVA [Suspect]
     Dosage: 36 MCG
     Route: 055
     Dates: start: 20090724
  2. COMBIVENT [Concomitant]
     Route: 055

REACTIONS (1)
  - DYSPNOEA [None]
